FAERS Safety Report 20167276 (Version 1)
Quarter: 2021Q4

REPORT INFORMATION
  Report Type: Spontaneous
  Country: JP (occurrence: JP)
  Receive Date: 20211209
  Receipt Date: 20211209
  Transmission Date: 20220303
  Serious: Yes (Hospitalization, Other)
  Sender: FDA-Public Use
  Company Number: JP-ABBVIE-21K-087-4184614-00

PATIENT
  Age: 48 Year
  Sex: Male
  Weight: 52 kg

DRUGS (18)
  1. VALPROATE SODIUM [Suspect]
     Active Substance: VALPROATE SODIUM
     Indication: Hemiconvulsion-hemiplegia-epilepsy syndrome
     Route: 065
  2. VALPROATE SODIUM [Suspect]
     Active Substance: VALPROATE SODIUM
     Route: 065
  3. VALPROATE SODIUM [Suspect]
     Active Substance: VALPROATE SODIUM
     Route: 065
  4. PHENYTOIN [Suspect]
     Active Substance: PHENYTOIN
     Indication: Hemiconvulsion-hemiplegia-epilepsy syndrome
     Route: 065
  5. PHENYTOIN [Suspect]
     Active Substance: PHENYTOIN
     Indication: Hemiconvulsion-hemiplegia-epilepsy syndrome
     Route: 065
  6. PHENYTOIN [Suspect]
     Active Substance: PHENYTOIN
     Indication: Hemiconvulsion-hemiplegia-epilepsy syndrome
     Route: 065
  7. ZONISAMIDE [Suspect]
     Active Substance: ZONISAMIDE
     Indication: Hemiconvulsion-hemiplegia-epilepsy syndrome
     Route: 048
  8. ZONISAMIDE [Suspect]
     Active Substance: ZONISAMIDE
     Indication: Hemiconvulsion-hemiplegia-epilepsy syndrome
     Route: 048
  9. ZONISAMIDE [Suspect]
     Active Substance: ZONISAMIDE
     Indication: Hemiconvulsion-hemiplegia-epilepsy syndrome
  10. CLOBAZAM [Suspect]
     Active Substance: CLOBAZAM
     Indication: Hemiconvulsion-hemiplegia-epilepsy syndrome
     Route: 048
  11. CLOBAZAM [Suspect]
     Active Substance: CLOBAZAM
     Indication: Hemiconvulsion-hemiplegia-epilepsy syndrome
     Route: 048
  12. CLOBAZAM [Suspect]
     Active Substance: CLOBAZAM
     Indication: Hemiconvulsion-hemiplegia-epilepsy syndrome
  13. CLONAZEPAM [Suspect]
     Active Substance: CLONAZEPAM
     Indication: Hemiconvulsion-hemiplegia-epilepsy syndrome
     Route: 065
  14. CLONAZEPAM [Suspect]
     Active Substance: CLONAZEPAM
     Indication: Hemiconvulsion-hemiplegia-epilepsy syndrome
     Route: 065
  15. CLONAZEPAM [Suspect]
     Active Substance: CLONAZEPAM
     Indication: Hemiconvulsion-hemiplegia-epilepsy syndrome
  16. KEPPRA [Concomitant]
     Active Substance: LEVETIRACETAM
     Indication: Product used for unknown indication
  17. CARBAMAZEPINE [Concomitant]
     Active Substance: CARBAMAZEPINE
     Indication: Product used for unknown indication
  18. LAMOTRIGINE [Concomitant]
     Active Substance: LAMOTRIGINE
     Indication: Product used for unknown indication

REACTIONS (8)
  - Hypoventilation [Recovered/Resolved]
  - Hyporeflexia [Unknown]
  - Motor dysfunction [Unknown]
  - Hypercapnia [Unknown]
  - Neuropathy peripheral [Unknown]
  - Blood test abnormal [Unknown]
  - Nystagmus [Unknown]
  - Motor dysfunction [Unknown]
